FAERS Safety Report 21832304 (Version 1)
Quarter: 2023Q1

REPORT INFORMATION
  Report Type: Spontaneous
  Country: US (occurrence: US)
  Receive Date: 20230106
  Receipt Date: 20230106
  Transmission Date: 20230418
  Serious: Yes (Other)
  Sender: FDA-Public Use
  Company Number: US-MYLANLABS-2022M1140907

PATIENT
  Age: 65 Year
  Sex: Male

DRUGS (7)
  1. PREDNISONE [Suspect]
     Active Substance: PREDNISONE
     Indication: Immunosuppressant drug therapy
     Dosage: UNK
     Route: 065
  2. PREDNISONE [Suspect]
     Active Substance: PREDNISONE
     Dosage: UNK (DOSE REDUCED)
     Route: 065
  3. CYCLOSPORINE [Suspect]
     Active Substance: CYCLOSPORINE
     Indication: Immunosuppressant drug therapy
     Dosage: UNK
     Route: 065
  4. DOXORUBICIN [Concomitant]
     Active Substance: DOXORUBICIN
     Indication: Lymphoma
     Dosage: UNK
     Route: 065
  5. BLEOMYCIN [Concomitant]
     Active Substance: BLEOMYCIN SULFATE
     Indication: Lymphoma
     Dosage: UNK
     Route: 065
  6. VINBLASTINE [Concomitant]
     Active Substance: VINBLASTINE
     Indication: Lymphoma
     Dosage: UNK
     Route: 065
  7. DACARBAZINE [Concomitant]
     Active Substance: DACARBAZINE
     Indication: Lymphoma
     Dosage: UNK
     Route: 065

REACTIONS (3)
  - Malignant sweat gland neoplasm [Unknown]
  - Blindness [Unknown]
  - Transplant rejection [Unknown]
